FAERS Safety Report 10064294 (Version 1)
Quarter: 2014Q2

REPORT INFORMATION
  Report Type: Spontaneous
  Country: US (occurrence: None)
  Receive Date: 20140407
  Receipt Date: 20140407
  Transmission Date: 20141212
  Serious: Yes (Life-Threatening, Hospitalization, Disabling)
  Sender: FDA-Public Use
  Company Number: None

PATIENT
  Age: 45 Year
  Sex: Male
  Weight: 121.6 kg

DRUGS (7)
  1. CLOZAPINE [Suspect]
     Indication: SCHIZOAFFECTIVE DISORDER
     Route: 048
     Dates: start: 20140108, end: 20140128
  2. DIVALPROEX [Concomitant]
  3. HALOPERIDOL [Concomitant]
  4. LACTULOSE [Concomitant]
  5. LEVOTHYROXINE [Concomitant]
  6. NICOTINE INHLAER [Concomitant]
  7. OLANZAPINE [Concomitant]

REACTIONS (2)
  - Atrial fibrillation [None]
  - Myocarditis [None]
